FAERS Safety Report 9284042 (Version 1)
Quarter: 2013Q2

REPORT INFORMATION
  Report Type: Spontaneous
  Country: CH (occurrence: CH)
  Receive Date: 20130510
  Receipt Date: 20130510
  Transmission Date: 20140414
  Serious: Yes (Hospitalization, Other)
  Sender: FDA-Public Use
  Company Number: CH-JNJFOC-20130500151

PATIENT
  Age: 68 Year
  Sex: Female

DRUGS (8)
  1. HALDOL [Suspect]
     Indication: DELUSION
     Dosage: (2-0-3) MG PER DAY
     Route: 065
  2. LITHIOFOR [Suspect]
     Indication: PRODUCT USED FOR UNKNOWN INDICATION
     Route: 065
  3. AKINETON RETARD [Concomitant]
     Route: 065
  4. XANAX [Concomitant]
     Route: 065
  5. AMLODIPINE [Concomitant]
     Route: 065
  6. DAFALGAN [Concomitant]
     Route: 065
  7. ZOLPIDEM [Concomitant]
     Route: 065
  8. IRFEN [Concomitant]
     Indication: PRODUCT USED FOR UNKNOWN INDICATION
     Route: 065

REACTIONS (3)
  - Extrapyramidal disorder [Unknown]
  - Fall [Unknown]
  - Muscle contractions involuntary [Unknown]
